FAERS Safety Report 4359102-0 (Version None)
Quarter: 2004Q2

REPORT INFORMATION
  Report Type: 
  Country: None (occurrence: None)
  Receive Date: 20040512
  Receipt Date: 20040430
  Transmission Date: 20050107
  Serious: Yes (Life-Threatening)
  Sender: FDA-Public Use
  Company Number: GB-JNJFOC-20040500338

PATIENT
  Age: 89 Year
  Sex: Male

DRUGS (1)
  1. REMINYL [Suspect]
     Indication: DEMENTIA ALZHEIMER'S TYPE
     Dosage: 4 MG, ORAL
     Route: 048
     Dates: start: 20040326, end: 20040331

REACTIONS (1)
  - CEREBROVASCULAR ACCIDENT [None]
